FAERS Safety Report 4931514-3 (Version None)
Quarter: 2006Q1

REPORT INFORMATION
  Report Type: 
  Country: None (occurrence: None)
  Receive Date: 20060303
  Receipt Date: 20060220
  Transmission Date: 20060701
  Serious: Yes (Other)
  Sender: FDA-Public Use
  Company Number: PHBS2006US03110

PATIENT
  Age: 54 Year
  Sex: Female

DRUGS (2)
  1. HEMATOPOETIC PROGENITOR CELLS HUMAN [Concomitant]
     Dosage: AUTOLOGOUS STEM CELL TRANSPLANT
  2. PAMIDRONATE DISODIUM [Suspect]
     Indication: OSTEOPENIA
     Dosage: 90 MG, QMO
     Route: 042

REACTIONS (19)
  - BLOOD ALBUMIN DECREASED [None]
  - BLOOD CREATININE INCREASED [None]
  - BLOOD IMMUNOGLOBULIN A DECREASED [None]
  - BLOOD IMMUNOGLOBULIN G INCREASED [None]
  - BLOOD IMMUNOGLOBULIN M DECREASED [None]
  - BLOOD PRESSURE INCREASED [None]
  - BLOOD UREA INCREASED [None]
  - CARDIAC MURMUR [None]
  - CREATININE RENAL CLEARANCE DECREASED [None]
  - FOCAL GLOMERULOSCLEROSIS [None]
  - HAEMOGLOBIN URINE PRESENT [None]
  - LIGHT CHAIN DISEASE [None]
  - NEPHROPATHY TOXIC [None]
  - NEPHROTIC SYNDROME [None]
  - OEDEMA PERIPHERAL [None]
  - PERIORBITAL OEDEMA [None]
  - PROTEIN URINE PRESENT [None]
  - PROTEINURIA [None]
  - RENAL FAILURE ACUTE [None]
